FAERS Safety Report 10482209 (Version 2)
Quarter: 2014Q3

REPORT INFORMATION
  Report Type: Spontaneous
  Country: US (occurrence: US)
  Receive Date: 20140929
  Receipt Date: 20140929
  Transmission Date: 20150326
  Serious: Yes (Hospitalization)
  Sender: FDA-Public Use
  Company Number: US-PFIZER INC-2014263882

PATIENT
  Age: 62 Year
  Sex: Female

DRUGS (6)
  1. TRIAMCINOLONE [Suspect]
     Active Substance: TRIAMCINOLONE
     Indication: BACK PAIN
     Dosage: 80 MG, AT L4-L5 (51 DAYS BEFORE ADMISSION)
     Route: 008
  2. TRIAMCINOLONE [Suspect]
     Active Substance: TRIAMCINOLONE
     Indication: SCIATICA
     Dosage: 80 MG, AT L5-S1 (17 DAYS BEFORE ADMISSION)
     Route: 008
  3. TRIAMCINOLONE [Suspect]
     Active Substance: TRIAMCINOLONE
     Indication: INTERVERTEBRAL DISC DEGENERATION
     Dosage: 80 MG, AT L5-S1 (9 DAYS BEFORE ADMISSION)
     Route: 008
  4. MEDROL [Suspect]
     Active Substance: METHYLPREDNISOLONE
     Indication: SCIATICA
  5. MEDROL [Suspect]
     Active Substance: METHYLPREDNISOLONE
     Indication: BACK PAIN
     Dosage: 84 MG, TAPERED OVER 5 DAYS
     Route: 048
  6. ALENDRONATE [Concomitant]
     Active Substance: ALENDRONATE SODIUM
     Indication: OSTEOPOROSIS
     Dosage: UNK

REACTIONS (1)
  - Herpes oesophagitis [Recovering/Resolving]
